FAERS Safety Report 8758501 (Version 1)
Quarter: 2012Q4

REPORT INFORMATION
  Report Type: 
  Country: SI (occurrence: SI)
  Receive Date: 20120829
  Receipt Date: 20120829
  Transmission Date: 20130627
  Serious: Yes (Hospitalization)
  Sender: FDA-Public Use
  Company Number: PHHY2012SI074042

PATIENT
  Age: 45 Year
  Sex: Female
  Weight: 83 kg

DRUGS (4)
  1. SANDIMMUN NEORAL [Suspect]
     Indication: ALLOGENIC BONE MARROW TRANSPLANTATION THERAPY
     Dosage: 75 mg, BID
     Route: 048
  2. VALTREX [Concomitant]
     Dosage: 2 DF, Q8H
     Route: 048
  3. CONTROLOC [Concomitant]
     Dosage: 40 mg, UNK
  4. STEDIRIL [Concomitant]
     Dosage: 1 DF, UNK
     Route: 048

REACTIONS (4)
  - Brain oedema [Recovered/Resolved]
  - Vomiting [Recovered/Resolved]
  - Headache [Recovered/Resolved]
  - Immunosuppressant drug level increased [Unknown]
